FAERS Safety Report 18220725 (Version 3)
Quarter: 2020Q3

REPORT INFORMATION
  Report Type: Report from Study
  Country: US (occurrence: US)
  Receive Date: 20200902
  Receipt Date: 20200918
  Transmission Date: 20201103
  Serious: No
  Sender: FDA-Public Use
  Company Number: NVSC2020US239942

PATIENT
  Sex: Female

DRUGS (1)
  1. MAYZENT [Suspect]
     Active Substance: SIPONIMOD
     Indication: PRODUCT USED FOR UNKNOWN INDICATION
     Dosage: 2 MG, QD
     Route: 048

REACTIONS (1)
  - Lymphocyte count decreased [Recovering/Resolving]
